FAERS Safety Report 9817616 (Version 1)
Quarter: 2013Q4

REPORT INFORMATION
  Report Type: Spontaneous
  Country: US (occurrence: None)
  Receive Date: 20131223
  Receipt Date: 20131223
  Transmission Date: 20140711
  Serious: No
  Sender: FDA-Public Use
  Company Number: 219153

PATIENT
  Age: 60 Year
  Sex: Male

DRUGS (2)
  1. PICATO [Suspect]
     Indication: ACTINIC KERATOSIS
     Dosage: (1 IN 1 D), TOPICAL
     Route: 061
     Dates: start: 20120918
  2. CLINDAMYCIN (CLINDAMYCIN) [Concomitant]

REACTIONS (6)
  - Skin irritation [None]
  - Tenderness [None]
  - Burning sensation [None]
  - Pain [None]
  - Erythema [None]
  - Drug administered at inappropriate site [None]
